FAERS Safety Report 7379831-4 (Version None)
Quarter: 2011Q1

REPORT INFORMATION
  Report Type: 
  Country: None (occurrence: None)
  Receive Date: 20110318
  Receipt Date: 20110303
  Transmission Date: 20110831
  Serious: Yes (Hospitalization)
  Sender: FDA-Public Use
  Company Number: 2011-0740

PATIENT
  Age: 68 Year
  Sex: Male

DRUGS (8)
  1. MOTILIUM [Concomitant]
  2. DETRUSITOL (TOLTERODINE) [Concomitant]
  3. THROMBYL  (ACETYLSALICYLIC ACID) [Concomitant]
  4. SIMVASTATIN [Concomitant]
  5. APO-GO AMPOULES (APO-GO) (APOMORPHINE HYDROCHLORIDE) (APOMORPHINE HYDR [Suspect]
     Indication: PARKINSON'S DISEASE
     Dates: start: 20090504
  6. CITALOPRAM (CITALOPRAM) [Concomitant]
  7. SINEMET [Concomitant]
  8. STALEVO (STALEVO [Concomitant]

REACTIONS (2)
  - INCORRECT DOSE ADMINISTERED [None]
  - SUICIDE ATTEMPT [None]
